FAERS Safety Report 9852587 (Version 2)
Quarter: 2014Q1

REPORT INFORMATION
  Report Type: Report from Study
  Country: DE (occurrence: DE)
  Receive Date: 20140129
  Receipt Date: 20140303
  Transmission Date: 20141002
  Serious: Yes (Other)
  Sender: FDA-Public Use
  Company Number: DE-JNJFOC-20140114493

PATIENT
  Age: 0 Day
  Sex: Female
  Weight: 3.1 kg

DRUGS (2)
  1. REMICADE [Suspect]
     Indication: CROHN^S DISEASE
     Route: 064
     Dates: start: 20130314
  2. REMICADE [Suspect]
     Indication: CROHN^S DISEASE
     Route: 064
     Dates: start: 20140108

REACTIONS (2)
  - Foetal exposure during pregnancy [Recovered/Resolved]
  - Exposure during breast feeding [Not Recovered/Not Resolved]
